FAERS Safety Report 10258127 (Version 6)
Quarter: 2016Q2

REPORT INFORMATION
  Report Type: Report from Study
  Country: GB (occurrence: GB)
  Receive Date: 20140625
  Receipt Date: 20160516
  Transmission Date: 20160815
  Serious: Yes (Death, Hospitalization, Other)
  Sender: FDA-Public Use
  Company Number: PHHY2014GB077174

PATIENT
  Age: 39 Year
  Sex: Male
  Weight: 81.1 kg

DRUGS (27)
  1. VENLAFAXINE [Suspect]
     Active Substance: VENLAFAXINE HYDROCHLORIDE
     Indication: DEPRESSION
     Dosage: 75 MG, UNK
     Route: 048
     Dates: start: 20140226
  2. BACLOFEN. [Concomitant]
     Active Substance: BACLOFEN
     Indication: MUSCLE SPASTICITY
     Dosage: 120.13 UG, QD
     Route: 037
     Dates: start: 20140120, end: 20140120
  3. BACLOFEN. [Concomitant]
     Active Substance: BACLOFEN
     Dosage: 143.94 UG, QD
     Route: 037
     Dates: start: 20140121, end: 20140121
  4. BACLOFEN. [Concomitant]
     Active Substance: BACLOFEN
     Dosage: 207.44 UG, QD
     Route: 037
     Dates: start: 20140207, end: 20140224
  5. BACLOFEN. [Concomitant]
     Active Substance: BACLOFEN
     Dosage: 274.29 UG, PER DAY, CONCENTRATION 2000 MCG/ML
     Route: 037
     Dates: start: 20140311
  6. AMLODIPINE [Suspect]
     Active Substance: AMLODIPINE BESYLATE
     Indication: HYPERTENSION
     Dosage: 30 MG, UNK
     Route: 048
     Dates: start: 20120705
  7. RAMIPRIL. [Suspect]
     Active Substance: RAMIPRIL
     Indication: HYPERTENSION
     Dosage: 2.5 MG, UNK
     Route: 048
     Dates: start: 20140113
  8. MIRTAZAPINE. [Suspect]
     Active Substance: MIRTAZAPINE
     Indication: PRODUCT USED FOR UNKNOWN INDICATION
     Dosage: UNK
     Route: 065
     Dates: start: 20140522
  9. BACLOFEN. [Concomitant]
     Active Substance: BACLOFEN
     Dosage: 249.98 UG, QD
     Route: 037
     Dates: start: 20140226, end: 20140310
  10. BACLOFEN. [Concomitant]
     Active Substance: BACLOFEN
     Dosage: 207 UG, QD 500 MCG/ML/ CONCENTRATION 10 MG/20ML
     Route: 037
  11. BACLOFEN. [Suspect]
     Active Substance: BACLOFEN
     Dosage: 1 DF, (10 MG/20 ML)
     Route: 037
  12. ZOPICLONE [Suspect]
     Active Substance: ZOPICLONE
     Indication: INSOMNIA
     Dosage: 3.75 MG, UNK
     Route: 048
     Dates: start: 20130220
  13. BACLOFEN. [Concomitant]
     Active Substance: BACLOFEN
     Dosage: 297.42 UG, QD
     Route: 037
     Dates: start: 20140121, end: 20140203
  14. PARACETAMOL [Suspect]
     Active Substance: ACETAMINOPHEN
     Indication: ANALGESIC THERAPY
     Dosage: 1000 MG, PRN
     Route: 048
     Dates: start: 20121112
  15. CO-DYDRAMOL [Suspect]
     Active Substance: ACETAMINOPHEN\DIHYDROCODEINE
     Indication: ANALGESIC THERAPY
     Dosage: 2000 MG, UNK
     Route: 048
     Dates: start: 20140109
  16. BACLOFEN. [Suspect]
     Active Substance: BACLOFEN
     Indication: CEREBROVASCULAR ACCIDENT
     Dosage: 274.29 UG, QD (2000 MCG/ML)
     Route: 037
  17. BACLOFEN. [Concomitant]
     Active Substance: BACLOFEN
     Indication: CEREBROVASCULAR ACCIDENT
     Dosage: 100 UG, QD
     Route: 037
     Dates: start: 20140117, end: 20140119
  18. BACLOFEN. [Concomitant]
     Active Substance: BACLOFEN
     Dosage: 248.72 UG, QD
     Route: 037
     Dates: start: 20140128, end: 20140130
  19. BACLOFEN. [Suspect]
     Active Substance: BACLOFEN
     Indication: MUSCLE SPASTICITY
     Dosage: 1 DF, (500 MG/ML)
     Route: 037
  20. METOPROLOL. [Suspect]
     Active Substance: METOPROLOL
     Indication: HYPERTENSION
     Dosage: 300 MG, UNK
     Route: 048
     Dates: start: 20120705
  21. SERTRALINE [Suspect]
     Active Substance: SERTRALINE HYDROCHLORIDE
     Indication: DEPRESSION
     Dosage: 50 MG, UNK
     Route: 048
     Dates: start: 20121210, end: 20140101
  22. BACLOFEN. [Concomitant]
     Active Substance: BACLOFEN
     Dosage: 172.03 UG, QD
     Route: 037
     Dates: start: 20140122, end: 20140122
  23. IBUPROFEN. [Suspect]
     Active Substance: IBUPROFEN
     Indication: ANALGESIC THERAPY
     Dosage: 1200 MG, UNK
     Route: 048
     Dates: start: 20140109
  24. SILDENAFIL. [Suspect]
     Active Substance: SILDENAFIL
     Indication: ERECTILE DYSFUNCTION
     Dosage: 50 MG, PRN
     Route: 048
     Dates: start: 20130220
  25. BACLOFEN. [Concomitant]
     Active Substance: BACLOFEN
     Dosage: 248.72 UG, QD
     Route: 037
     Dates: start: 20140204, end: 20140206
  26. BACLOFEN. [Concomitant]
     Active Substance: BACLOFEN
     Dosage: 207.44 UG, QD
     Route: 037
     Dates: start: 20140123, end: 20140127
  27. BACLOFEN. [Concomitant]
     Active Substance: BACLOFEN
     Dosage: 227.52 UG, QD
     Route: 037
     Dates: start: 20140225, end: 20140225

REACTIONS (40)
  - Insomnia [Fatal]
  - Therapeutic response unexpected [Fatal]
  - Stress [Recovered/Resolved]
  - Wound infection [Recovered/Resolved]
  - Hypotonia [Unknown]
  - Muscular weakness [Unknown]
  - Fall [Fatal]
  - Petechiae [Fatal]
  - Onychomycosis [Fatal]
  - Pulmonary oedema [Fatal]
  - Accidental death [Fatal]
  - Injury [Recovered/Resolved]
  - Alcohol poisoning [Fatal]
  - Mental disorder [Fatal]
  - Nausea [Recovered/Resolved]
  - Conjunctival hyperaemia [Fatal]
  - Cardiomegaly [Fatal]
  - Wound dehiscence [Recovered/Resolved]
  - Scar [Fatal]
  - Hepatic steatosis [Fatal]
  - Blood ethanol increased [Fatal]
  - Macrophages increased [Fatal]
  - Neutrophil count increased [Fatal]
  - Depression [Fatal]
  - Pain [Fatal]
  - Malaise [Fatal]
  - Erectile dysfunction [Unknown]
  - Pain in extremity [Fatal]
  - Gamma-glutamyltransferase abnormal [Fatal]
  - Condition aggravated [Fatal]
  - Implant site extravasation [Recovered/Resolved]
  - Anxiety [Recovered/Resolved]
  - Purulent discharge [Recovered/Resolved]
  - Vomiting [Recovered/Resolved]
  - Scratch [Fatal]
  - Toxicity to various agents [Fatal]
  - Sudden death [Fatal]
  - Implant site infection [Fatal]
  - Muscle spasticity [Fatal]
  - Self injurious behaviour [Recovered/Resolved]

NARRATIVE: CASE EVENT DATE: 20140203
